FAERS Safety Report 9431576 (Version 1)
Quarter: 2013Q3

REPORT INFORMATION
  Report Type: Spontaneous
  Country: US (occurrence: US)
  Receive Date: 20130731
  Receipt Date: 20130731
  Transmission Date: 20140515
  Serious: No
  Sender: FDA-Public Use
  Company Number: US-009507513-1307USA014568

PATIENT
  Sex: Female

DRUGS (4)
  1. VICTRELIS [Suspect]
     Indication: HEPATITIS C
     Dosage: UNK
     Dates: start: 20130426, end: 20130515
  2. REBETOL [Suspect]
     Indication: HEPATITIS C
     Dosage: UNK
     Dates: start: 20130201, end: 20130515
  3. TELAPREVIR [Suspect]
     Indication: HEPATITIS C
     Dosage: UNK
     Dates: start: 20130315, end: 20130412
  4. PEGASYS [Suspect]
     Indication: HEPATITIS C
     Dosage: UNK
     Dates: start: 20130201, end: 20130515

REACTIONS (7)
  - Skin burning sensation [Unknown]
  - Skin disorder [Unknown]
  - Onychoclasis [Unknown]
  - White blood cell count decreased [Unknown]
  - Fatigue [Unknown]
  - Alopecia [Recovered/Resolved]
  - Drug ineffective [Unknown]
